FAERS Safety Report 6080747-4 (Version None)
Quarter: 2009Q1

REPORT INFORMATION
  Report Type: 
  Country: None (occurrence: None)
  Receive Date: 20090121
  Receipt Date: 20080812
  Transmission Date: 20090719
  Serious: Yes (Other)
  Sender: FDA-Public Use
  Company Number: US-WYE-H05558008

PATIENT
  Sex: Female

DRUGS (7)
  1. PREMPRO [Suspect]
     Indication: MENOPAUSAL SYMPTOMS
  2. CENESTIN [Suspect]
  3. CYCRIN [Suspect]
  4. PREMARIN [Suspect]
  5. PROMETRIUM [Suspect]
  6. PROVERA [Suspect]
  7. VIVELLE [Suspect]

REACTIONS (1)
  - BREAST CANCER [None]
